FAERS Safety Report 14929146 (Version 1)
Quarter: 2018Q2

REPORT INFORMATION
  Report Type: Spontaneous
  Country: JP (occurrence: JP)
  Receive Date: 20180523
  Receipt Date: 20180523
  Transmission Date: 20180711
  Serious: Yes (Death, Other)
  Sender: FDA-Public Use
  Company Number: JP-BAYER-2017-242515

PATIENT
  Age: 95 Year
  Sex: Female
  Weight: 45.4 kg

DRUGS (10)
  1. BAYASPIRIN 100 MG [Suspect]
     Active Substance: ASPIRIN
     Indication: CEREBRAL INFARCTION
  2. VASOLAN [Concomitant]
     Active Substance: VERAPAMIL HYDROCHLORIDE
     Indication: ATRIAL FIBRILLATION
     Dosage: DAILY DOSE 80 MG
     Route: 048
  3. BAYASPIRIN 100 MG [Suspect]
     Active Substance: ASPIRIN
     Indication: ATRIAL FIBRILLATION
     Dosage: 100MG, DAILY
     Route: 048
     Dates: start: 20170820, end: 20170901
  4. KETAS [Concomitant]
     Active Substance: IBUDILAST
     Indication: CEREBRAL INFARCTION
     Dosage: DAILY DOSE 30 MG
     Route: 048
  5. NICERGOLINE [Concomitant]
     Active Substance: NICERGOLINE
     Indication: CEREBRAL INFARCTION
     Dosage: DAILY DOSE 15 MG
     Route: 048
  6. BAYASPIRIN 100 MG [Suspect]
     Active Substance: ASPIRIN
     Indication: ESSENTIAL THROMBOCYTHAEMIA
  7. SUNRYTHM [Concomitant]
     Active Substance: PILSICAINIDE HYDROCHLORIDE
     Indication: ATRIAL FIBRILLATION
     Dosage: DAILY DOSE 100 MG
     Route: 048
  8. TRANSAMIN [Suspect]
     Active Substance: TRANEXAMIC ACID
     Dosage: 1000MG, DAILY
     Route: 042
     Dates: start: 20170901, end: 20170904
  9. ADONA [Concomitant]
     Active Substance: CARBAZOCHROME SODIUM SULFONATE
     Route: 042
  10. REMINYL [Concomitant]
     Active Substance: GALANTAMINE
     Indication: DEMENTIA ALZHEIMER^S TYPE
     Dosage: DAILY DOSE 8 MG
     Route: 048

REACTIONS (11)
  - Pleural effusion [Fatal]
  - Haemorrhage subcutaneous [Recovering/Resolving]
  - Feeling hot [None]
  - Cardiomegaly [Fatal]
  - Pulmonary embolism [Fatal]
  - Bundle branch block right [Fatal]
  - Atrial thrombosis [Fatal]
  - Oedema peripheral [None]
  - Syncope [None]
  - Electrocardiogram PR prolongation [Fatal]
  - Electrocardiogram QT prolonged [Fatal]

NARRATIVE: CASE EVENT DATE: 2017
